FAERS Safety Report 18570034 (Version 1)
Quarter: 2020Q4

REPORT INFORMATION
  Report Type: Spontaneous
  Country: CN (occurrence: CN)
  Receive Date: 20201202
  Receipt Date: 20201202
  Transmission Date: 20210114
  Serious: Yes (Other)
  Sender: FDA-Public Use
  Company Number: CN-CASPER PHARMA LLC-2020CAS000632

PATIENT
  Age: 25 Year
  Sex: Male

DRUGS (1)
  1. PENICILLIN G BENZATHINE [Suspect]
     Active Substance: PENICILLIN G BENZATHINE
     Indication: TONSILLITIS
     Dosage: UNK
     Route: 030

REACTIONS (2)
  - Hip deformity [Recovered/Resolved]
  - Muscle contracture [Recovered/Resolved]
